FAERS Safety Report 16010889 (Version 1)
Quarter: 2019Q1

REPORT INFORMATION
  Report Type: Spontaneous
  Country: ES (occurrence: ES)
  Receive Date: 20190227
  Receipt Date: 20190227
  Transmission Date: 20190418
  Serious: Yes (Other)
  Sender: FDA-Public Use
  Company Number: ES-GLAXOSMITHKLINE-ES2016073152

PATIENT
  Age: 2 Year
  Sex: Female
  Weight: 15 kg

DRUGS (3)
  1. CEFUROXIME. [Suspect]
     Active Substance: CEFUROXIME
  2. BEXSERO [Suspect]
     Active Substance: MENINGOCOCCAL GROUP B VACCINE
     Indication: PROPHYLAXIS
     Dosage: .5 ML
     Route: 030
     Dates: start: 20160415, end: 20160415
  3. AMOXICILLIN. [Concomitant]
     Active Substance: AMOXICILLIN
     Dosage: UNK
     Dates: end: 20160413

REACTIONS (4)
  - Arthritis [Recovering/Resolving]
  - Gait disturbance [Recovering/Resolving]
  - Pyrexia [Recovered/Resolved]
  - Feeding intolerance [Unknown]

NARRATIVE: CASE EVENT DATE: 20160415
